FAERS Safety Report 4654241-9 (Version None)
Quarter: 2005Q2

REPORT INFORMATION
  Report Type: 
  Country: None (occurrence: None)
  Receive Date: 20050504
  Receipt Date: 20050421
  Transmission Date: 20051028
  Serious: Yes (Other)
  Sender: FDA-Public Use
  Company Number: 2005064324

PATIENT
  Age: 51 Year
  Sex: Female
  Weight: 70.3075 kg

DRUGS (4)
  1. BEXTRA [Suspect]
     Indication: ARTHRITIS
     Dosage: (DAILY), ORAL
     Route: 048
     Dates: start: 20040701, end: 20041101
  2. LEVOTHYROXINE SODIUM [Concomitant]
  3. CITALOPRAM (CITALOPRAM) [Concomitant]
  4. PROPACET 100 [Concomitant]

REACTIONS (6)
  - BLOOD PRESSURE INCREASED [None]
  - CHEST DISCOMFORT [None]
  - DIZZINESS POSTURAL [None]
  - HEART RATE INCREASED [None]
  - INFLUENZA [None]
  - NASOPHARYNGITIS [None]
